FAERS Safety Report 6803865-9 (Version None)
Quarter: 2010Q2

REPORT INFORMATION
  Report Type: 
  Country: None (occurrence: None)
  Receive Date: 20100628
  Receipt Date: 20100625
  Transmission Date: 20101027
  Serious: Yes (Hospitalization, Other)
  Sender: FDA-Public Use
  Company Number: FR-ROXANE LABORATORIES, INC.-2010-RO-00760RO

PATIENT
  Age: 81 Year
  Sex: Female

DRUGS (5)
  1. AMLODIPINE [Suspect]
  2. FENOFIBRATE [Suspect]
  3. SPIRONOLACTONE [Suspect]
  4. ALTIZIDE [Suspect]
  5. VALPROATE SODIUM [Suspect]
     Indication: GRAND MAL CONVULSION
     Dates: start: 20020101

REACTIONS (2)
  - GRAND MAL CONVULSION [None]
  - MEMORY IMPAIRMENT [None]
